FAERS Safety Report 13938275 (Version 8)
Quarter: 2018Q2

REPORT INFORMATION
  Report Type: Report from Study
  Country: CN (occurrence: CN)
  Receive Date: 20170905
  Receipt Date: 20180522
  Transmission Date: 20180711
  Serious: Yes (Hospitalization)
  Sender: FDA-Public Use
  Company Number: CN-B.I. PHARMACEUTICALS,INC./RIDGEFIELD-2017-BI-047982

PATIENT
  Age: 73 Year
  Sex: Female
  Weight: 54 kg

DRUGS (3)
  1. BENAZEPRIL [Concomitant]
     Active Substance: BENAZEPRIL HYDROCHLORIDE
     Indication: HYPERTENSION
     Route: 048
     Dates: start: 20170220
  2. TRAJENTA [Suspect]
     Active Substance: LINAGLIPTIN
     Indication: TYPE 2 DIABETES MELLITUS
     Route: 065
  3. LANTUS [Concomitant]
     Active Substance: INSULIN GLARGINE
     Indication: DIABETES MELLITUS
     Route: 055
     Dates: start: 20170101

REACTIONS (1)
  - Bundle branch block left [Recovered/Resolved]

NARRATIVE: CASE EVENT DATE: 20170829
